FAERS Safety Report 10040160 (Version 1)
Quarter: 2014Q1

REPORT INFORMATION
  Report Type: Spontaneous
  Country: US (occurrence: US)
  Receive Date: 20140326
  Receipt Date: 20140326
  Transmission Date: 20141002
  Serious: No
  Sender: FDA-Public Use
  Company Number: US-009507513-1403USA011875

PATIENT
  Sex: 0
  Weight: 60.32 kg

DRUGS (2)
  1. NEXPLANON [Suspect]
     Dosage: ONE ROD EVERY THREE YEARS
     Route: 059
     Dates: start: 20140313, end: 20140313
  2. NEXPLANON [Suspect]
     Dosage: ONE ROD EVERY THREE YEARS
     Route: 059
     Dates: start: 20140313

REACTIONS (2)
  - Device difficult to use [Unknown]
  - Product quality issue [Unknown]
